FAERS Safety Report 19478994 (Version 4)
Quarter: 2021Q3

REPORT INFORMATION
  Report Type: Report from Study
  Country: BR (occurrence: BR)
  Receive Date: 20210630
  Receipt Date: 20210823
  Transmission Date: 20211014
  Serious: Yes (Hospitalization, Other)
  Sender: FDA-Public Use
  Company Number: NVSC2021BR074165

PATIENT
  Age: 83 Year
  Sex: Female

DRUGS (4)
  1. MERITOR [Concomitant]
     Active Substance: GLIMEPIRIDE\METFORMIN
     Indication: DIABETES MELLITUS
     Dosage: UNK
     Route: 065
  2. TREZOR [Concomitant]
     Indication: PRODUCT USED FOR UNKNOWN INDICATION
     Dosage: UNK
     Route: 065
  3. KISQALI [Suspect]
     Active Substance: RIBOCICLIB
     Indication: BREAST CANCER
     Dosage: 600 MG (3 TABLETS OF 200 MG, FOR 2 DAYS AND PAUSES FOR 7 DAYS)
     Route: 048
     Dates: start: 20210601, end: 20210624
  4. FUROSEMIDE. [Concomitant]
     Active Substance: FUROSEMIDE
     Indication: MICTURITION DISORDER
     Dosage: UNK
     Route: 065

REACTIONS (24)
  - Ageusia [Recovered/Resolved]
  - Retching [Unknown]
  - Nausea [Recovered/Resolved]
  - Movement disorder [Recovered/Resolved]
  - Cerebrovascular accident [Recovered/Resolved]
  - Nervousness [Unknown]
  - Dysstasia [Unknown]
  - Hemiplegia [Not Recovered/Not Resolved]
  - Blood glucose decreased [Recovered/Resolved]
  - Dysphagia [Unknown]
  - Diarrhoea [Unknown]
  - Disorientation [Unknown]
  - Pain in extremity [Recovering/Resolving]
  - Fatigue [Unknown]
  - Arthralgia [Unknown]
  - Product prescribing error [Unknown]
  - Back pain [Recovering/Resolving]
  - Malaise [Unknown]
  - Hypoglycaemia [Not Recovered/Not Resolved]
  - Drug ineffective [Unknown]
  - Feeding disorder [Unknown]
  - Decreased appetite [Unknown]
  - Pain [Unknown]
  - Dizziness [Unknown]

NARRATIVE: CASE EVENT DATE: 20210601
